FAERS Safety Report 7356266-1 (Version None)
Quarter: 2011Q1

REPORT INFORMATION
  Report Type: 
  Country: None (occurrence: None)
  Receive Date: 20110316
  Receipt Date: 20110308
  Transmission Date: 20110831
  Serious: Yes (Other)
  Sender: FDA-Public Use
  Company Number: DE-B.I. PHARMACEUTICALS,INC./RIDGEFIELD-2011-DE-01649DE

PATIENT
  Sex: Male
  Weight: 75 kg

DRUGS (3)
  1. TRUVADA [Concomitant]
     Indication: HIV INFECTION
     Route: 048
     Dates: start: 20100917
  2. VIRAMUNE [Suspect]
     Indication: HIV INFECTION
     Dosage: 400 MG
     Route: 048
     Dates: start: 20101210, end: 20110304
  3. IBUPROFEN [Suspect]
     Indication: ABDOMINAL PAIN
     Dosage: 400 MG
     Route: 048

REACTIONS (1)
  - URTICARIA [None]
